FAERS Safety Report 9527906 (Version 2)
Quarter: 2013Q4

REPORT INFORMATION
  Report Type: Spontaneous
  Country: US (occurrence: US)
  Receive Date: 20130917
  Receipt Date: 20131002
  Transmission Date: 20140711
  Serious: No
  Sender: FDA-Public Use
  Company Number: US-PFIZER INC-2013263376

PATIENT
  Age: 61 Year
  Sex: Male
  Weight: 104 kg

DRUGS (3)
  1. VIAGRA [Suspect]
     Indication: ERECTILE DYSFUNCTION
     Dosage: 100 MG, AS NEEDED
     Route: 048
  2. VIAGRA [Suspect]
     Dosage: 50 MG, AS NEEDED
     Route: 048
  3. VIAGRA [Suspect]
     Dosage: 300 MG (3 TABLETS OF 100MG), AS NEEDED
     Route: 048
     Dates: start: 20130718

REACTIONS (2)
  - Suspected counterfeit product [Unknown]
  - Drug ineffective [Unknown]
